FAERS Safety Report 16715099 (Version 2)
Quarter: 2019Q3

REPORT INFORMATION
  Report Type: Spontaneous
  Country: US (occurrence: US)
  Receive Date: 20190819
  Receipt Date: 20190927
  Transmission Date: 20191005
  Serious: Yes (Other)
  Sender: FDA-Public Use
  Company Number: US-JNJFOC-20190812725

PATIENT
  Sex: Female

DRUGS (3)
  1. TYLENOL [Concomitant]
     Active Substance: ACETAMINOPHEN
     Indication: PAIN
  2. XARELTO [Suspect]
     Active Substance: RIVAROXABAN
     Indication: CARDIAC ASSISTANCE DEVICE USER
     Route: 048
     Dates: start: 201810
  3. DOXYCYCLINE. [Concomitant]
     Active Substance: DOXYCYCLINE

REACTIONS (10)
  - Abnormal loss of weight [Unknown]
  - Body height decreased [Unknown]
  - Contusion [Unknown]
  - Macular degeneration [Unknown]
  - Pollakiuria [Unknown]
  - Skin wrinkling [Unknown]
  - Joint injury [Unknown]
  - Cataract [Unknown]
  - Haemorrhage [Unknown]
  - Product label issue [Unknown]

NARRATIVE: CASE EVENT DATE: 2019
